FAERS Safety Report 15802231 (Version 1)
Quarter: 2019Q1

REPORT INFORMATION
  Report Type: Spontaneous
  Country: US (occurrence: US)
  Receive Date: 20190109
  Receipt Date: 20190109
  Transmission Date: 20190417
  Serious: No
  Sender: FDA-Public Use
  Company Number: US-ASTRAZENECA-2019SE01388

PATIENT
  Age: 28972 Day
  Sex: Female
  Weight: 63.5 kg

DRUGS (2)
  1. BYETTA [Suspect]
     Active Substance: EXENATIDE
     Indication: PRODUCT USED FOR UNKNOWN INDICATION
     Route: 058
  2. BYDUREON BCISE [Suspect]
     Active Substance: EXENATIDE
     Indication: TYPE 2 DIABETES MELLITUS
     Route: 058
     Dates: start: 201711

REACTIONS (8)
  - Hypoaesthesia [Unknown]
  - Hypoacusis [Unknown]
  - Needle issue [Unknown]
  - Product dose omission [Recovered/Resolved]
  - Device leakage [Unknown]
  - Device issue [Unknown]
  - Muscular weakness [Unknown]
  - Circumstance or information capable of leading to medication error [Unknown]

NARRATIVE: CASE EVENT DATE: 2016
